FAERS Safety Report 4948708-3 (Version None)
Quarter: 2006Q1

REPORT INFORMATION
  Report Type: 
  Country: None (occurrence: None)
  Receive Date: 20060313
  Receipt Date: 20060228
  Transmission Date: 20060701
  Serious: Yes (Other)
  Sender: FDA-Public Use
  Company Number: 2005060428

PATIENT
  Age: 35 Year
  Sex: Male

DRUGS (12)
  1. VFEND [Suspect]
     Indication: ASPERGILLOSIS
     Dosage: 400  MG (2 IN 1 D), ORAL
     Route: 048
     Dates: start: 20050128, end: 20050401
  2. CASPOFUNGIN (CASPOFUNGIN) [Suspect]
     Indication: FEBRILE BONE MARROW APLASIA
  3. AMPHOTERICIN B [Suspect]
     Indication: ILL-DEFINED DISORDER
     Dosage: 3 MG/KG EVERY DAY
  4. AXEPIM (CEFEPIME HYDROCHLORIDE) [Concomitant]
  5. AMIKIN [Concomitant]
  6. TIENAM (CILASTATIN, IMIPENEM) [Concomitant]
  7. CIPROFLAXACIN [Concomitant]
  8. CANCIDAS [Concomitant]
  9. CYTARABINE [Concomitant]
  10. PIPERACILLIN SODIUM W/TAZOBACTAM SODIUM (PIPERACILLIN SODIUM, TAZOBACT [Concomitant]
  11. AMIKACIN SULFATE [Concomitant]
  12. VANCOMYCIN HYDROCHLORIDE [Concomitant]

REACTIONS (8)
  - ALVEOLITIS [None]
  - BRONCHOPULMONARY ASPERGILLOSIS [None]
  - FEBRILE BONE MARROW APLASIA [None]
  - KLEBSIELLA INFECTION [None]
  - MUCORMYCOSIS [None]
  - PULMONARY INFARCTION [None]
  - SYSTEMIC MYCOSIS [None]
  - THERAPY NON-RESPONDER [None]
